FAERS Safety Report 8595082-X (Version None)
Quarter: 2012Q3

REPORT INFORMATION
  Report Type: 
  Country: None (occurrence: None)
  Receive Date: 20120807
  Receipt Date: 20120807
  Transmission Date: 20120928
  Serious: No
  Sender: FDA-Public Use
  Company Number: None

PATIENT
  Sex: Male
  Weight: 65.7716 kg

DRUGS (1)
  1. CLOPIDOGREL [Suspect]
     Indication: CARDIAC DISORDER
     Dosage: 75 1 DAY NOW 1/2 DAY SAME EVENTS ON GOING SINUS I SWITCHED FROM PLAVIX

REACTIONS (3)
  - CONTUSION [None]
  - PRODUCT SUBSTITUTION ISSUE [None]
  - HAEMORRHAGE [None]
